FAERS Safety Report 16667651 (Version 6)
Quarter: 2020Q4

REPORT INFORMATION
  Report Type: Spontaneous
  Country: US (occurrence: US)
  Receive Date: 20190805
  Receipt Date: 20201111
  Transmission Date: 20210113
  Serious: Yes (Other)
  Sender: FDA-Public Use
  Company Number: US-GILEAD-2019-0421679

PATIENT
  Age: 37 Year
  Sex: Male
  Weight: 63.49 kg

DRUGS (21)
  1. METOPROLOL TARTRATE. [Concomitant]
     Active Substance: METOPROLOL TARTRATE
  2. ZOFRAN [Concomitant]
     Active Substance: ONDANSETRON HYDROCHLORIDE
  3. DIAZEPAM. [Concomitant]
     Active Substance: DIAZEPAM
  4. GENVOYA [Concomitant]
     Active Substance: COBICISTAT\ELVITEGRAVIR\EMTRICITABINE\TENOFOVIR ALAFENAMIDE FUMARATE
  5. GABAPENTIN. [Concomitant]
     Active Substance: GABAPENTIN
  6. DILAUDID [Concomitant]
     Active Substance: HYDROMORPHONE HYDROCHLORIDE
  7. ZOLOFT [Concomitant]
     Active Substance: SERTRALINE HYDROCHLORIDE
  8. REMERON [Concomitant]
     Active Substance: MIRTAZAPINE
  9. FLONASE [Concomitant]
     Active Substance: FLUTICASONE PROPIONATE
  10. PRILOSEC [Concomitant]
     Active Substance: OMEPRAZOLE MAGNESIUM
  11. TORADOL [Concomitant]
     Active Substance: KETOROLAC TROMETHAMINE
  12. LISINOPRIL. [Concomitant]
     Active Substance: LISINOPRIL
  13. BENAZEPRIL AND HYDROCHLOROTHIAZIDE [Concomitant]
     Active Substance: BENAZEPRIL HYDROCHLORIDE\HYDROCHLOROTHIAZIDE
  14. ATORVASTATIN [Concomitant]
     Active Substance: ATORVASTATIN
  15. CELEBREX [Concomitant]
     Active Substance: CELECOXIB
  16. VALIUM [Concomitant]
     Active Substance: DIAZEPAM
  17. TRAMADOL. [Concomitant]
     Active Substance: TRAMADOL
  18. MORPHINE [Concomitant]
     Active Substance: MORPHINE
  19. NORVASC [Concomitant]
     Active Substance: AMLODIPINE BESYLATE
  20. GEMFIBROZIL. [Concomitant]
     Active Substance: GEMFIBROZIL
  21. COMPLERA [Suspect]
     Active Substance: EMTRICITABINE\RILPIVIRINE HYDROCHLORIDE\TENOFOVIR DISOPROXIL FUMARATE
     Indication: HIV INFECTION
     Dosage: UNK
     Route: 048
     Dates: start: 201001, end: 201701

REACTIONS (10)
  - Multiple fractures [Unknown]
  - Renal failure [Not Recovered/Not Resolved]
  - Anhedonia [Unknown]
  - Pain [Not Recovered/Not Resolved]
  - Depression [Not Recovered/Not Resolved]
  - Osteonecrosis [Not Recovered/Not Resolved]
  - Anxiety [Not Recovered/Not Resolved]
  - Emotional distress [Not Recovered/Not Resolved]
  - Economic problem [Unknown]
  - Bone density decreased [Not Recovered/Not Resolved]

NARRATIVE: CASE EVENT DATE: 201212
